FAERS Safety Report 25710316 (Version 1)
Quarter: 2025Q3

REPORT INFORMATION
  Report Type: Spontaneous
  Country: GB (occurrence: GB)
  Receive Date: 20250821
  Receipt Date: 20250821
  Transmission Date: 20251021
  Serious: Yes (Disabling, Other)
  Sender: AUROBINDO
  Company Number: GB-MHRA-MED-202508090846278880-KQRZL

PATIENT
  Age: 70 Year
  Sex: Male
  Weight: 102 kg

DRUGS (4)
  1. ALENDRONIC ACID [Suspect]
     Active Substance: ALENDRONIC ACID
     Indication: Osteopenia
     Route: 065
     Dates: start: 20250723, end: 20250809
  2. VITAMIN D [Concomitant]
     Active Substance: VITAMIN D NOS
     Indication: Osteopenia
     Route: 065
     Dates: start: 20240301
  3. SYMBICORT [Concomitant]
     Active Substance: BUDESONIDE\FORMOTEROL FUMARATE DIHYDRATE
     Indication: Adverse drug reaction
     Route: 065
     Dates: start: 20150601
  4. Colekal d3 [Concomitant]
     Indication: Osteopenia
     Route: 065

REACTIONS (3)
  - Bone pain [Recovering/Resolving]
  - Arthralgia [Unknown]
  - Abdominal tenderness [Unknown]

NARRATIVE: CASE EVENT DATE: 20250807
